FAERS Safety Report 19641193 (Version 1)
Quarter: 2021Q3

REPORT INFORMATION
  Report Type: Report from Study
  Country: None (occurrence: DE)
  Receive Date: 20210729
  Receipt Date: 20210729
  Transmission Date: 20211014
  Serious: Yes (Hospitalization)
  Sender: FDA-Public Use
  Company Number: DE-ABBVIE-21K-062-4010203-00

PATIENT
  Age: 52 Year
  Sex: Female
  Weight: 115 kg

DRUGS (1)
  1. SKYRIZI [Suspect]
     Active Substance: RISANKIZUMAB-RZAA
     Indication: PSORIASIS
     Route: 058
     Dates: start: 20200713

REACTIONS (2)
  - Animal bite [Recovering/Resolving]
  - Inflammation of wound [Unknown]

NARRATIVE: CASE EVENT DATE: 2021
